FAERS Safety Report 20230045 (Version 1)
Quarter: 2021Q4

REPORT INFORMATION
  Report Type: Spontaneous
  Country: FI (occurrence: FI)
  Receive Date: 20211226
  Receipt Date: 20211226
  Transmission Date: 20220303
  Serious: Yes (Other)
  Sender: FDA-Public Use
  Company Number: FI-TEVA-2021-FI-1979502

PATIENT
  Age: 92 Year
  Sex: Male

DRUGS (5)
  1. DICLOFENAC [Suspect]
     Active Substance: DICLOFENAC
     Indication: Arthralgia
     Dosage: 46.4 MILLIGRAM PER GRAM DAILY; START DATE: LONG AGO, PROBABLY TWO YEARS AGO
     Route: 061
  2. DICLOFENAC [Suspect]
     Active Substance: DICLOFENAC
     Indication: Back pain
  3. BISOPROLOL [Suspect]
     Active Substance: BISOPROLOL
     Dosage: 1/2 TABLET DAILY
     Route: 065
     Dates: start: 2021
  4. BISOPROLOL [Suspect]
     Active Substance: BISOPROLOL
     Dosage: 1 TABLET IN THE MORNING
     Route: 065
     Dates: end: 2021
  5. OMEPRAZOLE [Suspect]
     Active Substance: OMEPRAZOLE
     Indication: Gastric ulcer
     Route: 065
     Dates: start: 2021

REACTIONS (7)
  - Gastric ulcer [Recovered/Resolved]
  - Product use issue [Unknown]
  - Hypotension [Not Recovered/Not Resolved]
  - Heart rate decreased [Recovering/Resolving]
  - Blood pressure decreased [Unknown]
  - Fall [Unknown]
  - Insomnia [Recovered/Resolved]

NARRATIVE: CASE EVENT DATE: 20210101
